FAERS Safety Report 7373850-X (Version None)
Quarter: 2011Q1

REPORT INFORMATION
  Report Type: 
  Country: None (occurrence: None)
  Receive Date: 20110325
  Receipt Date: 20110317
  Transmission Date: 20110831
  Serious: No
  Sender: FDA-Public Use
  Company Number: US-PFIZER INC-2011062716

PATIENT
  Sex: Female

DRUGS (7)
  1. CALCIUM [Concomitant]
     Dosage: UNK
  2. ATACAND [Concomitant]
     Dosage: UNK
  3. MAGNESIUM [Concomitant]
     Dosage: UNK
  4. LOPRESSOR [Concomitant]
     Dosage: UNK
  5. FUROSEMIDE [Concomitant]
     Indication: DIURETIC THERAPY
     Dosage: UNK
  6. VERAPAMIL HCL [Suspect]
     Dosage: UNK
     Route: 048
  7. ZANTAC [Concomitant]
     Dosage: UNK

REACTIONS (1)
  - DRUG INEFFECTIVE [None]
